FAERS Safety Report 13377287 (Version 1)
Quarter: 2017Q1

REPORT INFORMATION
  Report Type: Spontaneous
  Country: US (occurrence: US)
  Receive Date: 20170328
  Receipt Date: 20170328
  Transmission Date: 20170429
  Serious: Yes (Hospitalization)
  Sender: FDA-Public Use
  Company Number: None

PATIENT
  Age: 47 Year
  Sex: Female

DRUGS (3)
  1. FOLIC ACID. [Concomitant]
     Active Substance: FOLIC ACID
  2. PRILOSEC [Concomitant]
     Active Substance: OMEPRAZOLE MAGNESIUM
  3. RASUVO [Suspect]
     Active Substance: METHOTREXATE SODIUM
     Indication: ARTHROPATHY
     Route: 058
     Dates: start: 20161129

REACTIONS (1)
  - Pneumonia [None]

NARRATIVE: CASE EVENT DATE: 20170317
